FAERS Safety Report 12293845 (Version 1)
Quarter: 2016Q2

REPORT INFORMATION
  Report Type: Spontaneous
  Country: US (occurrence: US)
  Receive Date: 20160422
  Receipt Date: 20160422
  Transmission Date: 20160815
  Serious: No
  Sender: FDA-Public Use
  Company Number: US-TEVA-652752ACC

PATIENT
  Age: 30 Year
  Sex: Female

DRUGS (4)
  1. SEROQUEL [Concomitant]
     Active Substance: QUETIAPINE FUMARATE
  2. LITHIUM. [Concomitant]
     Active Substance: LITHIUM
  3. LAMICTAL [Concomitant]
     Active Substance: LAMOTRIGINE
  4. PARAGARD T 380A [Suspect]
     Active Substance: COPPER
     Indication: CONTRACEPTION
     Dates: start: 20160318, end: 20160318

REACTIONS (2)
  - Procedural pain [Recovered/Resolved]
  - Complication of device insertion [Unknown]

NARRATIVE: CASE EVENT DATE: 20160318
